FAERS Safety Report 5976524-2 (Version None)
Quarter: 2008Q4

REPORT INFORMATION
  Report Type: 
  Country: None (occurrence: None)
  Receive Date: 20081124
  Receipt Date: 20081110
  Transmission Date: 20090506
  Serious: Yes (Other)
  Sender: FDA-Public Use
  Company Number: JP-2008-1060

PATIENT
  Age: 61 Year
  Sex: Male

DRUGS (7)
  1. NAVELBINE [Suspect]
     Indication: NON-SMALL CELL LUNG CANCER
     Dosage: 35 MG IV
     Route: 042
     Dates: start: 20081009, end: 20081009
  2. CISPLATIN [Suspect]
     Indication: NON-SMALL CELL LUNG CANCER
     Dosage: 130 MG IV
     Route: 042
     Dates: start: 20081009, end: 20081009
  3. NORVASC [Suspect]
     Indication: HYPERTENSION
     Dosage: 5 MG PO
     Route: 048
  4. LASIX [Suspect]
     Dates: start: 20081012
  5. NASEA [Concomitant]
  6. DEXART. MFR: NOT SPECIFIED [Concomitant]
  7. FAMOTIDINE [Concomitant]

REACTIONS (2)
  - BLOOD PRESSURE DECREASED [None]
  - OEDEMA [None]
